FAERS Safety Report 15979169 (Version 1)
Quarter: 2019Q1

REPORT INFORMATION
  Report Type: Spontaneous
  Country: US (occurrence: US)
  Receive Date: 20190215
  Receipt Date: 20190215
  Transmission Date: 20190418
  Serious: Yes (Hospitalization)
  Sender: FDA-Public Use
  Company Number: None

PATIENT
  Age: 49 Year
  Sex: Male

DRUGS (11)
  1. HUMIRA [Suspect]
     Active Substance: ADALIMUMAB
     Indication: COLITIS ULCERATIVE
     Dosage: ?          OTHER FREQUENCY:EVERY OTHER WEEK;?
     Route: 058
     Dates: start: 20190109
  2. PREDNISONE 10MG TABLET [Concomitant]
     Dates: start: 20190128
  3. LIALDA [Concomitant]
     Active Substance: MESALAMINE
     Dates: start: 20181114
  4. TEMAZEPAM 30MG CAPSULTES [Concomitant]
     Dates: start: 20190128, end: 20190204
  5. SYNTHROID 200MCG TABLET [Concomitant]
     Dates: start: 20181222
  6. DICYCLOMINE 20MG TABLET [Concomitant]
     Active Substance: DICYCLOMINE HYDROCHLORIDE
     Dates: start: 20190115
  7. BYSTOLIC 10MG TABLET [Concomitant]
     Dates: start: 20180206
  8. METHOTREXATE 25MG/ML INJECTION [Concomitant]
     Dates: start: 20190118
  9. TESTOSTERONE CYPIONATE 200MG/ML [Concomitant]
     Active Substance: TESTOSTERONE CYPIONATE
     Dates: start: 20190212
  10. OXYCODONE/APAP TABLET 5MG-325MG [Concomitant]
     Dates: start: 20190212, end: 20190215
  11. EXEMESTANE 25MG TABLET [Concomitant]
     Dates: start: 20181228

REACTIONS (4)
  - Weight fluctuation [None]
  - Fatigue [None]
  - Abdominal pain [None]
  - Pyrexia [None]

NARRATIVE: CASE EVENT DATE: 20190201
